FAERS Safety Report 13984869 (Version 1)
Quarter: 2017Q3

REPORT INFORMATION
  Report Type: Report from Study
  Country: None (occurrence: US)
  Receive Date: 20170918
  Receipt Date: 20170918
  Transmission Date: 20171128
  Serious: Yes (Other)
  Sender: FDA-Public Use
  Company Number: US-ABBVIE-17K-163-2104031-00

PATIENT
  Age: 49 Year
  Sex: Female

DRUGS (1)
  1. HUMIRA [Suspect]
     Active Substance: ADALIMUMAB
     Indication: PRODUCT USED FOR UNKNOWN INDICATION
     Route: 058
     Dates: start: 20160112

REACTIONS (4)
  - Diverticulitis [Unknown]
  - Blood urine present [Unknown]
  - Haematochezia [Unknown]
  - Rash erythematous [Unknown]

NARRATIVE: CASE EVENT DATE: 2016
